FAERS Safety Report 19494096 (Version 1)
Quarter: 2021Q3

REPORT INFORMATION
  Report Type: Spontaneous
  Country: US (occurrence: US)
  Receive Date: 20210706
  Receipt Date: 20210706
  Transmission Date: 20211014
  Serious: No
  Sender: FDA-Public Use
  Company Number: US-TEVA-2021-US-1930263

PATIENT
  Sex: Female

DRUGS (1)
  1. DIAZEPAM. [Suspect]
     Active Substance: DIAZEPAM

REACTIONS (5)
  - Electric shock sensation [Unknown]
  - Drug ineffective [Unknown]
  - Tremor [Unknown]
  - Head discomfort [Unknown]
  - Tongue discomfort [Unknown]
